FAERS Safety Report 7289100-9 (Version None)
Quarter: 2011Q1

REPORT INFORMATION
  Report Type: 
  Country: None (occurrence: None)
  Receive Date: 20110211
  Receipt Date: 20110208
  Transmission Date: 20110831
  Serious: Yes (Life-Threatening)
  Sender: FDA-Public Use
  Company Number: FR-ASTRAZENECA-2011SE07133

PATIENT
  Age: 10722 Day
  Sex: Female

DRUGS (4)
  1. SUFENTA PRESERVATIVE FREE [Suspect]
     Indication: GENERAL ANAESTHESIA
     Route: 042
     Dates: start: 20101011, end: 20101011
  2. DIPRIVAN [Suspect]
     Indication: GENERAL ANAESTHESIA
     Route: 042
     Dates: start: 20101011, end: 20101011
  3. SUCCINYLCHOLINE CHLORIDE [Suspect]
     Indication: GENERAL ANAESTHESIA
     Route: 042
     Dates: start: 20101011, end: 20101011
  4. ATARAX [Concomitant]

REACTIONS (3)
  - BRONCHOSPASM [None]
  - CIRCULATORY COLLAPSE [None]
  - RASH [None]
